FAERS Safety Report 9458529 (Version 1)
Quarter: 2013Q3

REPORT INFORMATION
  Report Type: Spontaneous
  Country: US (occurrence: US)
  Receive Date: 20130814
  Receipt Date: 20130814
  Transmission Date: 20140515
  Serious: Yes (Congenital Anomaly)
  Sender: FDA-Public Use
  Company Number: US-FRI-1000047717

PATIENT
  Age: 0 Day
  Sex: Male

DRUGS (1)
  1. LEXAPRO [Suspect]
     Dates: start: 2005, end: 20050311

REACTIONS (8)
  - Hypoplastic left heart syndrome [Unknown]
  - Mitral valve hypoplasia [Unknown]
  - Aorta hypoplasia [Unknown]
  - Pulmonary artery stenosis congenital [Unknown]
  - Tricuspid valve incompetence [Unknown]
  - Aortic valve incompetence [Unknown]
  - Arteriovenous malformation [Unknown]
  - Congenital hydrocephalus [Unknown]
